FAERS Safety Report 6130461-1 (Version None)
Quarter: 2009Q1

REPORT INFORMATION
  Report Type: 
  Country: None (occurrence: None)
  Receive Date: 20090323
  Receipt Date: 20090310
  Transmission Date: 20090719
  Serious: Yes (Other)
  Sender: FDA-Public Use
  Company Number: 1-17825970

PATIENT
  Age: 70 Year
  Sex: Female
  Weight: 45.3597 kg

DRUGS (8)
  1. WARFARIN SODIUM [Suspect]
     Dosage: 2.5 MG 2D/WK, 5 MG 5D/WK ORAL
     Route: 048
     Dates: end: 20090218
  2. TRIAMCINOLONE ACETONIDE [Suspect]
     Indication: APHTHOUS STOMATITIS
     Dosage: 3 TIMES DAILY TOPICAL
     Route: 061
     Dates: start: 20090213, end: 20090218
  3. TOPROL-XL [Concomitant]
  4. DIGOXIN [Concomitant]
  5. LUMIGAN [Concomitant]
  6. ASCORBIC ACID [Concomitant]
  7. CALCIUM [Concomitant]
  8. VITAMIN D3 [Concomitant]

REACTIONS (2)
  - CONTUSION [None]
  - INTERNATIONAL NORMALISED RATIO INCREASED [None]
